FAERS Safety Report 8490526-6 (Version None)
Quarter: 2012Q3

REPORT INFORMATION
  Report Type: 
  Country: None (occurrence: None)
  Receive Date: 20120705
  Receipt Date: 20120628
  Transmission Date: 20120928
  Serious: Yes (Death)
  Sender: FDA-Public Use
  Company Number: GB-GILEAD-E2B_00001341

PATIENT
  Sex: Male

DRUGS (2)
  1. AMBRISENTAN [Suspect]
     Indication: PULMONARY ARTERIAL HYPERTENSION
     Route: 048
     Dates: start: 20091013
  2. AMBRISENTAN [Suspect]

REACTIONS (2)
  - RIGHT VENTRICULAR FAILURE [None]
  - INGUINAL HERNIA, OBSTRUCTIVE [None]
